FAERS Safety Report 12281766 (Version 2)
Quarter: 2016Q2

REPORT INFORMATION
  Report Type: Spontaneous
  Country: US (occurrence: US)
  Receive Date: 20160419
  Receipt Date: 20160420
  Transmission Date: 20160815
  Serious: No
  Sender: FDA-Public Use
  Company Number: US-TEVA-643265USA

PATIENT
  Age: 34 Year
  Sex: Female

DRUGS (1)
  1. ZECUITY [Suspect]
     Active Substance: SUMATRIPTAN SUCCINATE
     Route: 062
     Dates: start: 201510, end: 201510

REACTIONS (7)
  - Dermatitis contact [Unknown]
  - Application site erythema [Recovered/Resolved]
  - Drug ineffective [Unknown]
  - Application site pruritus [Unknown]
  - Application site swelling [Unknown]
  - Application site warmth [Unknown]
  - Application site pain [Unknown]

NARRATIVE: CASE EVENT DATE: 201510
